FAERS Safety Report 4872573-6 (Version None)
Quarter: 2006Q1

REPORT INFORMATION
  Report Type: 
  Country: None (occurrence: None)
  Receive Date: 20060103
  Receipt Date: 20051215
  Transmission Date: 20060701
  Serious: Yes (Hospitalization)
  Sender: FDA-Public Use
  Company Number: ES200512003882

PATIENT
  Age: 76 Year
  Sex: Male

DRUGS (1)
  1. CAPASTA (CAPREOMYCIN SULFATE) VIAL [Suspect]
     Indication: MYCOBACTERIAL INFECTION
     Dosage: 1 G, DAILY (1/D), INTRAMUSCULAR
     Route: 030
     Dates: start: 20041130, end: 20050112

REACTIONS (3)
  - GAIT DISTURBANCE [None]
  - RASH [None]
  - VESTIBULAR DISORDER [None]
